FAERS Safety Report 5747238-9 (Version None)
Quarter: 2008Q2

REPORT INFORMATION
  Report Type: 
  Country: None (occurrence: None)
  Receive Date: 20080520
  Receipt Date: 20080501
  Transmission Date: 20081010
  Serious: Yes (Hospitalization)
  Sender: FDA-Public Use
  Company Number: 2008PL00068

PATIENT
  Age: 57 Year
  Sex: Female

DRUGS (5)
  1. AZATHIOPRINE [Suspect]
     Indication: CROHN'S DISEASE
     Dosage: 50 MG; PO
     Route: 048
     Dates: end: 20050101
  2. INFLIXIMAB (INFLIXIMAB) [Suspect]
     Indication: CROHN'S DISEASE
     Dosage: 5 MG/KG; X2; IV, ;X2; IV
     Route: 042
     Dates: start: 20041006, end: 20041001
  3. INFLIXIMAB (INFLIXIMAB) [Suspect]
     Indication: CROHN'S DISEASE
     Dosage: 5 MG/KG; X2; IV, ;X2; IV
     Route: 042
     Dates: start: 20041227, end: 20050101
  4. MESALAMINE [Concomitant]
  5. PREDNISOLONE [Concomitant]

REACTIONS (12)
  - ABDOMINAL TENDERNESS [None]
  - BLOOD BETA-D-GLUCAN INCREASED [None]
  - COUGH [None]
  - DRUG INEFFECTIVE [None]
  - DYSPNOEA [None]
  - HAEMATOCHEZIA [None]
  - HAEMOGLOBIN DECREASED [None]
  - HYPOXIA [None]
  - LEUKOPENIA [None]
  - LYMPHOCYTE COUNT DECREASED [None]
  - PNEUMOTHORAX [None]
  - PYREXIA [None]
